FAERS Safety Report 9686209 (Version 1)
Quarter: 2013Q4

REPORT INFORMATION
  Report Type: Spontaneous
  Country: JP (occurrence: US)
  Receive Date: 20131113
  Receipt Date: 20131113
  Transmission Date: 20140711
  Serious: Yes (Death)
  Sender: FDA-Public Use
  Company Number: JP-CUBIST PHARMACEUTICAL, INC.-2012S1000895

PATIENT
  Sex: 0

DRUGS (1)
  1. CUBICIN [Suspect]
     Indication: SEPSIS
     Dosage: UNK UNK, UNK
     Route: 042

REACTIONS (2)
  - Renal disorder [Unknown]
  - Condition aggravated [Unknown]
